FAERS Safety Report 6135896-9 (Version None)
Quarter: 2009Q1

REPORT INFORMATION
  Report Type: 
  Country: None (occurrence: None)
  Receive Date: 20090327
  Receipt Date: 20090312
  Transmission Date: 20090719
  Serious: Yes (Hospitalization)
  Sender: FDA-Public Use
  Company Number: ES-GENENTECH-268839

PATIENT
  Sex: Female

DRUGS (10)
  1. TRASTUZUMAB [Suspect]
     Indication: BREAST CANCER
     Dosage: 8 MG/KG, UNK
     Route: 042
     Dates: start: 20080604
  2. TRASTUZUMAB [Suspect]
     Dosage: 324 MG, Q3W
     Route: 042
     Dates: start: 20080604
  3. PERTUZUMAB [Suspect]
     Indication: BREAST CANCER
     Dosage: 840 MG, Q21D
     Route: 042
     Dates: start: 20080604
  4. FLUOROURACIL [Suspect]
     Indication: BREAST CANCER
     Dosage: 923.69 MG, Q3W
     Route: 042
     Dates: start: 20080916
  5. EPIRUBICIN [Suspect]
     Indication: BREAST CANCER
     Dosage: 138.55 MG, Q3W
     Route: 042
     Dates: start: 20080916
  6. CYCLOPHOSPHAMIDE [Suspect]
     Indication: BREAST CANCER
     Dosage: 923.69 MG, Q3W
     Route: 042
     Dates: start: 20080916
  7. NITROGLYCERIN [Concomitant]
     Indication: DRUG USE FOR UNKNOWN INDICATION
     Dosage: UNK
     Dates: start: 20080901
  8. CAFINITRINA [Concomitant]
     Indication: DRUG USE FOR UNKNOWN INDICATION
     Dosage: UNK
     Dates: start: 20080921
  9. MORPHINE [Concomitant]
     Indication: DRUG USE FOR UNKNOWN INDICATION
     Dosage: UNK
     Dates: start: 20080921
  10. CAPOTEN [Concomitant]
     Indication: DRUG USE FOR UNKNOWN INDICATION
     Dosage: UNK

REACTIONS (1)
  - ANGINA PECTORIS [None]
